FAERS Safety Report 7628818-2 (Version None)
Quarter: 2011Q3

REPORT INFORMATION
  Report Type: 
  Country: None (occurrence: None)
  Receive Date: 20110722
  Receipt Date: 20110711
  Transmission Date: 20111222
  Serious: Yes (Hospitalization)
  Sender: FDA-Public Use
  Company Number: US-UCBSA-031486

PATIENT
  Sex: Male

DRUGS (1)
  1. CIMZIA [Suspect]
     Indication: CROHN'S DISEASE
     Dosage: FORM:LYO;LAST DOSE ON 01-APR-2011
     Route: 058
     Dates: start: 20090209

REACTIONS (1)
  - SPINAL FRACTURE [None]
